FAERS Safety Report 24143651 (Version 1)
Quarter: 2024Q3

REPORT INFORMATION
  Report Type: Spontaneous
  Country: NL (occurrence: NL)
  Receive Date: 20240727
  Receipt Date: 20240727
  Transmission Date: 20241017
  Serious: Yes (Other)
  Sender: TEVA
  Company Number: None

PATIENT
  Age: 75 Year
  Sex: Male
  Weight: 66 kg

DRUGS (14)
  1. TEMAZEPAM [Suspect]
     Active Substance: TEMAZEPAM
     Indication: Insomnia
     Dosage: ZN 1 PIECE ONCE A DAY, BRAND NAME NOT SPECIFIED
     Route: 065
     Dates: start: 20240701, end: 20240702
  2. ACETYLSALICYLIC ACID PARACETAMOL [Concomitant]
     Indication: Product used for unknown indication
     Dosage: 500 MG 2 PIECES ONCE A DAY, COF TAB 250/250/65MG / BRAND NAME NOT SPECIFIED
     Route: 065
  3. MORPHINE [Concomitant]
     Active Substance: MORPHINE
     Indication: Product used for unknown indication
     Dosage: DOSAGE: 2 MG/ML DRINK / BRAND NAME NOT SPECIFIED
     Route: 065
  4. FENOTEROL HYDROBROMIDE\IPRATROPIUM BROMIDE [Concomitant]
     Active Substance: FENOTEROL HYDROBROMIDE\IPRATROPIUM BROMIDE
     Indication: Product used for unknown indication
     Dosage: 50/20 ?G/DOSE (MICROGRAMS PER DOSE), 50/20UG/DO / CFKVR AEROSOL SPRAY 200DO + INHALATOR
     Route: 065
  5. SUCRALAN [Concomitant]
     Indication: Product used for unknown indication
     Dosage: 1G / 200MG/ML IN 5ML BAG
     Route: 065
  6. HUMAN RED BLOOD CELL [Concomitant]
     Active Substance: HUMAN RED BLOOD CELL
     Indication: Product used for unknown indication
     Dosage: (RED BLOOD CELLS, PACKED CELLS)
     Route: 065
  7. NADROPARIN [Concomitant]
     Active Substance: NADROPARIN
     Indication: Product used for unknown indication
     Dosage: INJECTION FLUID, 9500 IU/ML (UNITS PER MILLILITER), INJVLST 9500IE/ML / BRAND NAME NOT SPECIFIED
     Route: 065
  8. GLYCOPYRRONIUM INDACATEROL [Concomitant]
     Indication: Product used for unknown indication
     Dosage: 110/50 ?G (MICROGRAM), INHALER 110/50 UG / BRAND NAME NOT SPECIFIED
     Route: 065
  9. CEFTRIAXONE [Concomitant]
     Active Substance: CEFTRIAXONE\CEFTRIAXONE SODIUM
     Indication: Product used for unknown indication
     Dosage: INFVLST / BRAND NAME NOT SPECIFIED
     Route: 065
  10. PANTOPRAZOLE [Concomitant]
     Active Substance: PANTOPRAZOLE
     Indication: Product used for unknown indication
     Dosage: TABLET MSR/ BRAND NAME NOT SPECIFIED
     Route: 065
  11. ASPIRIN [Concomitant]
     Active Substance: ASPIRIN
     Indication: Product used for unknown indication
     Dosage: BRAND NAME NOT SPECIFIED
     Route: 065
  12. EZETIMIBE\SIMVASTATIN [Concomitant]
     Active Substance: EZETIMIBE\SIMVASTATIN
     Indication: Product used for unknown indication
     Dosage: 10/40MG / BRAND NAME NOT SPECIFIED
  13. ACETYLCYSTEINE [Concomitant]
     Active Substance: ACETYLCYSTEINE
     Indication: Product used for unknown indication
     Dosage: DOSAGE: 100 MG/ML NEBULIZING FLUID, NEBULIZER
     Route: 065
  14. AMLODIPINE [Concomitant]
     Active Substance: AMLODIPINE BESYLATE
     Indication: Product used for unknown indication
     Dosage: BRAND NAME NOT SPECIFIED
     Route: 065

REACTIONS (2)
  - Hallucination, visual [Recovered/Resolved]
  - Confusional state [Recovered/Resolved]
